FAERS Safety Report 23929386 (Version 2)
Quarter: 2025Q3

REPORT INFORMATION
  Report Type: Spontaneous
  Country: US (occurrence: US)
  Receive Date: 20240601
  Receipt Date: 20250703
  Transmission Date: 20251021
  Serious: No
  Sender: RADIUS PHARM
  Company Number: US-RADIUS HEALTH INC.-2024US002313

PATIENT
  Sex: Female

DRUGS (1)
  1. TYMLOS [Suspect]
     Active Substance: ABALOPARATIDE
     Indication: Osteoporosis
     Route: 058

REACTIONS (5)
  - Chest discomfort [Recovering/Resolving]
  - Product use complaint [Unknown]
  - Product administered to patient of inappropriate age [Unknown]
  - Heart rate increased [Recovering/Resolving]
  - Product dose omission in error [Unknown]
